FAERS Safety Report 6956287-4 (Version None)
Quarter: 2010Q3

REPORT INFORMATION
  Report Type: 
  Country: None (occurrence: None)
  Receive Date: 20100830
  Receipt Date: 20100820
  Transmission Date: 20110219
  Serious: Yes (Hospitalization)
  Sender: FDA-Public Use
  Company Number: A0782656A

PATIENT
  Sex: Female
  Weight: 116 kg

DRUGS (17)
  1. ELTROMBOPAG [Suspect]
     Indication: THROMBOCYTOPENIA
     Dosage: 25MG PER DAY
     Route: 048
     Dates: start: 20081215, end: 20090504
  2. PEG-INTRON [Suspect]
     Dosage: 150MCG WEEKLY
     Route: 058
     Dates: start: 20081215, end: 20100427
  3. REBETOL [Suspect]
     Route: 048
     Dates: start: 20081215, end: 20090504
  4. ELTROMBOPAG [Suspect]
     Dosage: 25MG PER DAY
     Route: 048
     Dates: start: 20081201, end: 20081214
  5. SPIRONOL [Concomitant]
     Dosage: 75MG PER DAY
     Route: 048
     Dates: start: 20090406, end: 20090623
  6. TORASEMIDUM [Concomitant]
     Dosage: 5MG PER DAY
     Route: 048
     Dates: start: 20090323, end: 20090623
  7. CALCIUM GLUBIONATE [Concomitant]
     Dosage: 177MG THREE TIMES PER DAY
     Route: 048
     Dates: start: 20090223, end: 20090623
  8. TACROLIMUS [Concomitant]
     Dosage: 6MG PER DAY
     Route: 048
     Dates: start: 20090624
  9. CELLCEPT [Concomitant]
     Dosage: .5G TWICE PER DAY
     Route: 048
     Dates: start: 20090624
  10. ENCORTOLON [Concomitant]
     Dosage: 15MG PER DAY
     Route: 048
     Dates: start: 20090624
  11. ORTANOL [Concomitant]
     Dosage: 20MG PER DAY
     Route: 048
     Dates: start: 20090624
  12. CALCIUM + VITAMIN D [Concomitant]
     Indication: OSTEOPOROSIS PROPHYLAXIS
     Dosage: 1TAB TWICE PER DAY
     Route: 048
     Dates: start: 20090624
  13. MAGNESIUM [Concomitant]
     Indication: SUPPLEMENTATION THERAPY
     Dosage: 1TAB TWICE PER DAY
     Route: 048
     Dates: start: 20090624
  14. SORBIFER DURULES [Concomitant]
     Dosage: 1TAB TWICE PER DAY
     Route: 048
     Dates: start: 20090624
  15. HEVIRAN [Concomitant]
     Indication: ANTIVIRAL PROPHYLAXIS
     Dosage: .2G FOUR TIMES PER DAY
     Route: 048
     Dates: start: 20090624, end: 20090721
  16. URSODIOL [Concomitant]
     Dosage: 250MG TWICE PER DAY
     Route: 048
     Dates: start: 20090624
  17. ACETAMINOPHEN [Concomitant]
     Dosage: 500MG AS REQUIRED
     Route: 048
     Dates: start: 20090624

REACTIONS (6)
  - ASCITES [None]
  - ASTHENIA [None]
  - HEPATIC FAILURE [None]
  - HEPATIC NEOPLASM MALIGNANT [None]
  - JAUNDICE [None]
  - OEDEMA PERIPHERAL [None]
